FAERS Safety Report 8863386 (Version 1)
Quarter: 2012Q4

REPORT INFORMATION
  Report Type: 
  Country: US (occurrence: US)
  Receive Date: 20121024
  Receipt Date: 20121024
  Transmission Date: 20130627
  Serious: No
  Sender: FDA-Public Use
  Company Number: US-ROXANE LABORATORIES, INC.-2012-RO-01990RO

PATIENT
  Age: 87 Year
  Sex: Male

DRUGS (1)
  1. CALCIUM ACETATE [Suspect]
     Dosage: 4002 mg
     Route: 048
     Dates: start: 201205, end: 201205

REACTIONS (3)
  - Constipation [Not Recovered/Not Resolved]
  - Lip swelling [Recovered/Resolved]
  - Eye swelling [Not Recovered/Not Resolved]
